FAERS Safety Report 5887526-9 (Version None)
Quarter: 2008Q3

REPORT INFORMATION
  Report Type: 
  Country: None (occurrence: None)
  Receive Date: 20080918
  Receipt Date: 20080910
  Transmission Date: 20090109
  Serious: Yes (Other)
  Sender: FDA-Public Use
  Company Number: PHHY2008IT07445

PATIENT
  Age: 71 Year
  Sex: Female

DRUGS (14)
  1. ZOMETA [Suspect]
     Indication: BREAST CANCER
     Dosage: 4 MG, QMO
     Route: 042
     Dates: start: 20040101
  2. ALLOPURINOL [Concomitant]
     Route: 048
  3. LANSOX [Concomitant]
     Route: 048
  4. DURAGESIC-100 [Concomitant]
     Route: 061
  5. FEMARA [Concomitant]
     Route: 048
  6. NEURONTIN [Concomitant]
     Route: 048
  7. LAROXYL [Concomitant]
     Route: 048
  8. AMARYL [Concomitant]
     Route: 048
  9. EFFEXOR [Concomitant]
     Route: 048
  10. MOVICOL [Concomitant]
     Route: 048
  11. LASIX [Concomitant]
  12. SOLDESAM [Concomitant]
  13. DICLOREUM [Concomitant]
  14. ENOXAPARIN SODIUM [Concomitant]
     Route: 058

REACTIONS (1)
  - OSTEONECROSIS [None]
